FAERS Safety Report 25240051 (Version 1)
Quarter: 2025Q2

REPORT INFORMATION
  Report Type: Spontaneous
  Country: US (occurrence: US)
  Receive Date: 20250425
  Receipt Date: 20250425
  Transmission Date: 20250716
  Serious: Yes (Other)
  Sender: PFIZER
  Company Number: US-PFIZER INC-202500086862

PATIENT
  Sex: Male

DRUGS (3)
  1. LITFULO [Suspect]
     Active Substance: RITLECITINIB TOSYLATE
     Dosage: 50 MG, 1X/DAY
  2. LITFULO [Suspect]
     Active Substance: RITLECITINIB TOSYLATE
  3. LITFULO [Suspect]
     Active Substance: RITLECITINIB TOSYLATE

REACTIONS (3)
  - Hypertensive urgency [Unknown]
  - Drug ineffective [Unknown]
  - Off label use [Unknown]
